FAERS Safety Report 17890542 (Version 2)
Quarter: 2020Q4

REPORT INFORMATION
  Report Type: Spontaneous
  Country: US (occurrence: US)
  Receive Date: 20200612
  Receipt Date: 20201028
  Transmission Date: 20210113
  Serious: No
  Sender: FDA-Public Use
  Company Number: US-BAYER-2020-115382

PATIENT

DRUGS (1)
  1. ALEVE-D SINUS AND HEADACHE [Suspect]
     Active Substance: NAPROXEN SODIUM\PSEUDOEPHEDRINE HYDROCHLORIDE

REACTIONS (2)
  - Therapeutic product effect delayed [Unknown]
  - Therapeutic product effect incomplete [Unknown]
